FAERS Safety Report 12154348 (Version 1)
Quarter: 2016Q1

REPORT INFORMATION
  Report Type: Report from Study
  Country: PL (occurrence: PL)
  Receive Date: 20160307
  Receipt Date: 20160307
  Transmission Date: 20160526
  Serious: Yes (Hospitalization, Other)
  Sender: FDA-Public Use
  Company Number: PL-TEVA-640198ISR

PATIENT
  Age: 69 Year
  Sex: Male

DRUGS (4)
  1. LONQUEX [Suspect]
     Active Substance: LIPEGFILGRASTIM
     Dates: start: 20150225, end: 20150225
  2. DOXORUBICIN [Suspect]
     Active Substance: DOXORUBICIN
     Indication: CHEMOTHERAPY
     Dosage: 100 MILLIGRAM DAILY;
     Route: 042
     Dates: start: 20150224, end: 20150224
  3. VINCRISTINE TEVA [Suspect]
     Active Substance: VINCRISTINE
     Indication: CHEMOTHERAPY
     Dosage: 2 MILLIGRAM DAILY;
     Route: 042
     Dates: start: 20150224, end: 20150224
  4. CYCLOPHOSPHAMIDE. [Suspect]
     Active Substance: CYCLOPHOSPHAMIDE
     Indication: CHEMOTHERAPY
     Dosage: 1500 MILLIGRAM DAILY;
     Route: 042
     Dates: start: 20150224, end: 20150224

REACTIONS (6)
  - Febrile neutropenia [Recovered/Resolved]
  - Asthenia [Unknown]
  - Pneumonia [Recovered/Resolved]
  - Sinusitis [Unknown]
  - Neutropenia [Recovered/Resolved]
  - Dyspnoea [Unknown]

NARRATIVE: CASE EVENT DATE: 20150412
